FAERS Safety Report 4833254-8 (Version None)
Quarter: 2005Q4

REPORT INFORMATION
  Report Type: 
  Country: None (occurrence: None)
  Receive Date: 20051117
  Receipt Date: 20051108
  Transmission Date: 20060501
  Serious: Yes (Hospitalization)
  Sender: FDA-Public Use
  Company Number: DE_051117501

PATIENT
  Age: 52 Year
  Sex: Female

DRUGS (5)
  1. ZYPREXA [Suspect]
     Indication: MAJOR DEPRESSION
     Dates: start: 20030826, end: 20040324
  2. REMERGIL (MIRTAZAPINE) [Concomitant]
  3. CITALOPRAM HYDROBROMIDE [Concomitant]
  4. AMITRIPTYLINE HCL [Concomitant]
  5. LORAZEPAM [Concomitant]

REACTIONS (6)
  - APHASIA [None]
  - DRUG WITHDRAWAL SYNDROME [None]
  - DYSKINESIA [None]
  - DYSPHEMIA [None]
  - MUSCLE RIGIDITY [None]
  - TREMOR [None]
